FAERS Safety Report 9439694 (Version 1)
Quarter: 2013Q3

REPORT INFORMATION
  Report Type: Spontaneous
  Country: US (occurrence: US)
  Receive Date: 20130805
  Receipt Date: 20130805
  Transmission Date: 20140515
  Serious: No
  Sender: FDA-Public Use
  Company Number: US-PFIZER INC-2013226499

PATIENT
  Age: 66 Year
  Sex: Female
  Weight: 53.5 kg

DRUGS (2)
  1. LYRICA [Suspect]
     Indication: FIBROMYALGIA
     Dosage: 50 MG, UNK
     Dates: start: 2013, end: 2013
  2. LYRICA [Suspect]
     Dosage: 150MG IN MORNING AND 50MG AT NIGHT, 2X/DAY
     Dates: start: 2013

REACTIONS (2)
  - Dizziness [Recovered/Resolved]
  - Fibromyalgia [Unknown]
